FAERS Safety Report 9691442 (Version 2)
Quarter: 2013Q4

REPORT INFORMATION
  Report Type: Spontaneous
  Country: US (occurrence: US)
  Receive Date: 20131115
  Receipt Date: 20131126
  Transmission Date: 20140711
  Serious: Yes (Other)
  Sender: FDA-Public Use
  Company Number: US-009507513-1311USA005452

PATIENT
  Age: 32 Year
  Sex: Female

DRUGS (2)
  1. SINGULAIR [Suspect]
     Indication: ASTHMA
     Dosage: 10 MG, UNK
     Route: 065
  2. SINGULAIR [Suspect]
     Indication: POLYP
     Dosage: 10 MG, UNK
     Route: 065

REACTIONS (4)
  - Ear discomfort [Unknown]
  - Nasal discomfort [Unknown]
  - Product substitution issue [Unknown]
  - Throat irritation [Unknown]
